FAERS Safety Report 5825996-2 (Version None)
Quarter: 2008Q3

REPORT INFORMATION
  Report Type: 
  Country: None (occurrence: None)
  Receive Date: 20080729
  Receipt Date: 20080721
  Transmission Date: 20090109
  Serious: Yes (Other)
  Sender: FDA-Public Use
  Company Number: US-SANOFI-SYNTHELABO-A03200802497

PATIENT
  Sex: Female
  Weight: 41.7 kg

DRUGS (4)
  1. PIROXICAM [Concomitant]
     Indication: DRUG USE FOR UNKNOWN INDICATION
     Dosage: UNK
     Route: 065
  2. PLAVIX [Suspect]
     Indication: DRUG USE FOR UNKNOWN INDICATION
     Route: 048
     Dates: start: 20050501, end: 20070901
  3. PLAVIX [Suspect]
     Route: 048
     Dates: start: 20070901
  4. BLOOD PRESSURE MEDICATIONS [Concomitant]
     Indication: DRUG USE FOR UNKNOWN INDICATION
     Dosage: UNK
     Route: 065

REACTIONS (7)
  - BLADDER DISORDER [None]
  - CONTUSION [None]
  - JOINT SWELLING [None]
  - MUSCLE SPASMS [None]
  - RENAL DISORDER [None]
  - RENAL HAEMORRHAGE [None]
  - RENAL PAIN [None]
